FAERS Safety Report 6186335-3 (Version None)
Quarter: 2009Q2

REPORT INFORMATION
  Report Type: 
  Country: None (occurrence: None)
  Receive Date: 20090511
  Receipt Date: 20090504
  Transmission Date: 20091009
  Serious: Yes (Other)
  Sender: FDA-Public Use
  Company Number: TH-AVENTIS-200914563GDDC

PATIENT
  Age: 61 Year
  Sex: Female
  Weight: 42 kg

DRUGS (7)
  1. LANTUS [Suspect]
     Route: 058
     Dates: start: 20081202, end: 20090130
  2. GLICLAZIDE [Suspect]
     Indication: DIABETES MELLITUS
     Route: 048
     Dates: start: 20080301
  3. AMLODIPINE [Concomitant]
     Indication: HYPERTENSION
     Route: 048
     Dates: start: 20080404
  4. METFORMIN HCL [Concomitant]
     Indication: DIABETES MELLITUS
     Route: 048
     Dates: start: 20081222
  5. PIOGLITAZONE [Concomitant]
     Indication: DIABETES MELLITUS
     Route: 048
     Dates: start: 20080301
  6. APROVEL [Concomitant]
     Indication: HYPERTENSION
     Route: 048
     Dates: start: 20081222
  7. BISOPROLOL [Concomitant]
     Indication: HYPERTENSION
     Route: 048
     Dates: start: 20081222

REACTIONS (4)
  - HYPERHIDROSIS [None]
  - HYPOGLYCAEMIA [None]
  - NODAL ARRHYTHMIA [None]
  - PALPITATIONS [None]
